FAERS Safety Report 24547114 (Version 1)
Quarter: 2024Q4

REPORT INFORMATION
  Report Type: Spontaneous
  Country: US (occurrence: US)
  Receive Date: 20241025
  Receipt Date: 20241025
  Transmission Date: 20250115
  Serious: No
  Sender: EMD SERONO INC
  Company Number: US-Merck Healthcare KGaA-2024055388

PATIENT
  Sex: Male

DRUGS (1)
  1. REBIF [Suspect]
     Active Substance: INTERFERON BETA-1A
     Indication: Multiple sclerosis
     Dosage: 44 UG/0.5 ML
     Route: 058
     Dates: start: 202305

REACTIONS (3)
  - Malaise [Not Recovered/Not Resolved]
  - Product temperature excursion issue [Unknown]
  - Product preparation error [Unknown]
